FAERS Safety Report 9160381 (Version 1)
Quarter: 2013Q1

REPORT INFORMATION
  Report Type: Spontaneous
  Country: JP (occurrence: JP)
  Receive Date: 20130313
  Receipt Date: 20130313
  Transmission Date: 20140127
  Serious: Yes (Life-Threatening, Other)
  Sender: FDA-Public Use
  Company Number: JP-PFIZER INC-2013065612

PATIENT
  Age: 65 Year
  Sex: Female

DRUGS (8)
  1. LYRICA [Suspect]
     Indication: BACK PAIN
     Dosage: 75 MG, 1X/DAY
     Route: 048
     Dates: start: 20120110, end: 20120305
  2. LYRICA [Suspect]
     Dosage: 25 MG AT MORNING AND AT 75 MG AT EVENING, 2X/DAY
     Route: 048
     Dates: start: 20120306, end: 20120326
  3. LYRICA [Suspect]
     Dosage: 75 MG, 1X/DAY
     Route: 048
     Dates: start: 20120327, end: 20120417
  4. LYRICA [Suspect]
     Dosage: 25 MG AT MORNING AND AT 75 MG AT EVENING , 2X/DAY
     Route: 048
     Dates: start: 20120605, end: 20120624
  5. LYRICA [Suspect]
     Dosage: 75 MG, 1X/DAY
     Route: 048
     Dates: start: 20120625, end: 20130114
  6. LYRICA [Suspect]
     Dosage: 75 MG, 2X/DAY
     Route: 048
     Dates: start: 20130115
  7. OLMETEC [Concomitant]
     Dosage: 20 MG, 1X/DAY
     Route: 048
  8. BENZALIN [Concomitant]
     Dosage: 10 MG, 1X/DAY
     Route: 048

REACTIONS (5)
  - Loss of consciousness [Unknown]
  - Loss of consciousness [Recovered/Resolved]
  - Fall [Recovered/Resolved]
  - Cough [Unknown]
  - Back pain [Unknown]
